FAERS Safety Report 8462320-3 (Version None)
Quarter: 2012Q2

REPORT INFORMATION
  Report Type: 
  Country: None (occurrence: None)
  Receive Date: 20120625
  Receipt Date: 20120619
  Transmission Date: 20120825
  Serious: No
  Sender: FDA-Public Use
  Company Number: US-PFIZER INC-2012148089

PATIENT
  Sex: Female
  Weight: 130 kg

DRUGS (3)
  1. WARFARIN [Concomitant]
     Indication: COAGULOPATHY
     Dosage: UNK
  2. LYRICA [Suspect]
     Indication: COMPLEX REGIONAL PAIN SYNDROME
     Dosage: 50 MG, 3X/DAY
     Route: 048
     Dates: start: 20120401, end: 20120501
  3. LYRICA [Suspect]
     Dosage: 100 MG, 3X/DAY
     Route: 048
     Dates: start: 20120501

REACTIONS (3)
  - INTERNATIONAL NORMALISED RATIO ABNORMAL [None]
  - WEIGHT INCREASED [None]
  - PAIN [None]
